FAERS Safety Report 24772364 (Version 2)
Quarter: 2025Q1

REPORT INFORMATION
  Report Type: Spontaneous
  Country: US (occurrence: US)
  Receive Date: 20241224
  Receipt Date: 20250114
  Transmission Date: 20250408
  Serious: No
  Sender: ALKERMES
  Company Number: US-ALKERMES INC.-ALK-2024-003254

PATIENT
  Sex: Male
  Weight: 97.506 kg

DRUGS (15)
  1. VIVITROL [Suspect]
     Active Substance: NALTREXONE
     Indication: Alcohol use disorder
     Route: 030
     Dates: start: 20240809, end: 20241205
  2. VIVITROL [Suspect]
     Active Substance: NALTREXONE
     Indication: Alcoholism
  3. NAPROXEN [Concomitant]
     Active Substance: NAPROXEN
     Indication: Back pain
     Route: 065
  4. PAROXETINE [Concomitant]
     Active Substance: PAROXETINE
     Indication: Product used for unknown indication
     Route: 065
  5. PAROXETINE [Concomitant]
     Active Substance: PAROXETINE
  6. CYCLOBENZAPRINE [Concomitant]
     Active Substance: CYCLOBENZAPRINE
     Indication: Product used for unknown indication
     Route: 065
  7. METFORMIN [Concomitant]
     Active Substance: METFORMIN HYDROCHLORIDE
     Indication: Diabetes mellitus
     Route: 065
  8. NALTREXONE [Concomitant]
     Active Substance: NALTREXONE
     Indication: Product used for unknown indication
     Route: 065
  9. COLCHICINE [Concomitant]
     Active Substance: COLCHICINE
     Indication: Product used for unknown indication
     Route: 065
  10. ROSUVASTATIN [Concomitant]
     Active Substance: ROSUVASTATIN
     Indication: Blood cholesterol increased
     Route: 065
  11. OTHER NASAL PREPARATIONS [Concomitant]
     Indication: Product used for unknown indication
     Route: 045
  12. DUPIXENT [Concomitant]
     Active Substance: DUPILUMAB
     Indication: Hypersensitivity
     Route: 065
  13. MONTELUKAST [Concomitant]
     Active Substance: MONTELUKAST
     Indication: Product used for unknown indication
     Route: 065
  14. FLUTICASONE [Concomitant]
     Active Substance: FLUTICASONE
     Indication: Product used for unknown indication
  15. OMEPRAZOLE [Concomitant]
     Active Substance: OMEPRAZOLE
     Indication: Dyspepsia
     Route: 065

REACTIONS (9)
  - Incorrect route of product administration [Recovering/Resolving]
  - Injection site abscess [Recovered/Resolved]
  - Injection site infection [Recovered/Resolved]
  - Injection site discharge [Recovered/Resolved]
  - Injection site pain [Recovered/Resolved]
  - Injection site movement impairment [Recovered/Resolved]
  - Injection site erythema [Recovered/Resolved]
  - Injection site warmth [Recovered/Resolved]
  - Injection site bruising [Unknown]

NARRATIVE: CASE EVENT DATE: 20240101
